FAERS Safety Report 6870694-X (Version None)
Quarter: 2010Q3

REPORT INFORMATION
  Report Type: 
  Country: None (occurrence: None)
  Receive Date: 20100723
  Receipt Date: 20090805
  Transmission Date: 20110219
  Serious: No
  Sender: FDA-Public Use
  Company Number: A0827507A

PATIENT
  Age: 85 Year
  Sex: Female
  Weight: 56.75 kg

DRUGS (2)
  1. CLOBETASOL PROPIONATE [Suspect]
     Route: 061
     Dates: start: 20090701, end: 20090805
  2. BLOOD PRESSURE PILL [Concomitant]
     Indication: BLOOD PRESSURE

REACTIONS (1)
  - DRUG INEFFECTIVE [None]
